FAERS Safety Report 8405089-0 (Version None)
Quarter: 2012Q2

REPORT INFORMATION
  Report Type: 
  Country: None (occurrence: None)
  Receive Date: 20120602
  Receipt Date: 20120525
  Transmission Date: 20120825
  Serious: Yes (Death, Life-Threatening, Hospitalization)
  Sender: FDA-Public Use
  Company Number: US-BAYER-2012-052010

PATIENT
  Age: 82 Year
  Sex: Male

DRUGS (12)
  1. METRONIDAZOLE [Concomitant]
     Dosage: UNK
     Dates: start: 20110520
  2. METFORMIN HCL [Suspect]
     Indication: DIABETES MELLITUS
     Dosage: 2000 MG, UNK
  3. HEPARIN SODIUM [Concomitant]
  4. BETA BLOCKING AGENTS [Concomitant]
  5. ANGIOTENSIN II ANTAGONISTS [Concomitant]
  6. INSULIN GLARGINE [Suspect]
     Indication: DIABETES MELLITUS
     Dosage: 101 IU, UNK
  7. INSULIN ASPART [Suspect]
     Indication: DIABETES MELLITUS
     Dosage: 108 IU, UNK
  8. WARFARIN SODIUM [Suspect]
     Indication: ATRIAL FIBRILLATION
  9. SAXAGLIPTIN OR PLACEBO [Suspect]
     Indication: TYPE 2 DIABETES MELLITUS
     Dosage: UNK
     Dates: start: 20110113
  10. HMG COA REDUCTASE INHIBITORS [Concomitant]
  11. ASPIRIN [Suspect]
  12. CIPROFLOXACIN [Concomitant]
     Dosage: UNK
     Dates: start: 20110520

REACTIONS (5)
  - DUODENAL PERFORATION [None]
  - ABDOMINAL PAIN UPPER [None]
  - FAECES DISCOLOURED [None]
  - GASTROINTESTINAL ULCER HAEMORRHAGE [None]
  - HAEMATEMESIS [None]
